FAERS Safety Report 4728483-8 (Version None)
Quarter: 2005Q3

REPORT INFORMATION
  Report Type: 
  Country: None (occurrence: None)
  Receive Date: 20050729
  Receipt Date: 20040818
  Transmission Date: 20060218
  Serious: No
  Sender: FDA-Public Use
  Company Number: US-GLAXOSMITHKLINE-A0522628A

PATIENT
  Age: 72 Year
  Sex: Female

DRUGS (7)
  1. ZANTAC [Suspect]
     Dosage: 300MG PER DAY
     Route: 048
     Dates: start: 20040811, end: 20040817
  2. ATACAND [Concomitant]
  3. PRILOSEC [Concomitant]
  4. LORAZEPAM [Concomitant]
  5. CLARITIN [Concomitant]
  6. VAGIFEM [Concomitant]
  7. NASACORT [Concomitant]

REACTIONS (1)
  - MUSCLE SPASMS [None]
